FAERS Safety Report 8548605-0 (Version None)
Quarter: 2012Q3

REPORT INFORMATION
  Report Type: 
  Country: None (occurrence: None)
  Receive Date: 20120730
  Receipt Date: 20120717
  Transmission Date: 20120928
  Serious: Yes (Hospitalization, Other)
  Sender: FDA-Public Use
  Company Number: IT-CELGENEUS-083-CYTAR-11070667

PATIENT
  Sex: Male
  Weight: 80 kg

DRUGS (2)
  1. CYTARABINE [Suspect]
     Indication: MANTLE CELL LYMPHOMA
     Dosage: 3 GRAM
     Route: 065
     Dates: start: 20100921, end: 20100922
  2. CYTARABINE [Suspect]
     Dosage: 3 GRAM
     Route: 065
     Dates: start: 20101019, end: 20101020

REACTIONS (1)
  - RENAL CANCER [None]
